FAERS Safety Report 21364699 (Version 1)
Quarter: 2022Q3

REPORT INFORMATION
  Report Type: Spontaneous
  Country: US (occurrence: None)
  Receive Date: 20220922
  Receipt Date: 20220922
  Transmission Date: 20221027
  Serious: Yes (Other)
  Sender: FDA-Public Use
  Company Number: None

PATIENT
  Age: 45 Year
  Sex: Male
  Weight: 29.25 kg

DRUGS (2)
  1. CIPROFLOXACIN HYDROCHLORIDE [Suspect]
     Active Substance: CIPROFLOXACIN HYDROCHLORIDE
     Indication: Urinary tract infection
     Dosage: OTHER QUANTITY : 1 TABLET(S);?FREQUENCY : TWICE A DAY;?
     Route: 048
     Dates: start: 20220527, end: 20220529
  2. CEFDINIR [Suspect]
     Active Substance: CEFDINIR

REACTIONS (9)
  - Pollakiuria [None]
  - Blood urine present [None]
  - Insomnia [None]
  - Arthralgia [None]
  - Pain in extremity [None]
  - Asthenia [None]
  - Scrotal swelling [None]
  - Penile size reduced [None]
  - Haematuria [None]

NARRATIVE: CASE EVENT DATE: 20220527
